FAERS Safety Report 16627250 (Version 2)
Quarter: 2019Q3

REPORT INFORMATION
  Report Type: Spontaneous
  Country: MY (occurrence: MY)
  Receive Date: 20190724
  Receipt Date: 20190724
  Transmission Date: 20191004
  Serious: Yes (Other)
  Sender: FDA-Public Use
  Company Number: PHHY2019MY171007

PATIENT
  Age: 33 Year
  Sex: Male

DRUGS (6)
  1. CYTARABINE. [Suspect]
     Active Substance: CYTARABINE
     Indication: BLAST CRISIS IN MYELOGENOUS LEUKAEMIA
     Dosage: UNK
     Route: 065
     Dates: start: 201712
  2. NILOTINIB [Suspect]
     Active Substance: NILOTINIB
     Indication: BLAST CRISIS IN MYELOGENOUS LEUKAEMIA
     Dosage: 150 MG, BID
     Route: 048
     Dates: start: 201701
  3. INTERFERON [Suspect]
     Active Substance: INTERFERON
     Indication: PRODUCT USED FOR UNKNOWN INDICATION
     Dosage: UNK
     Route: 065
  4. NILOTINIB [Suspect]
     Active Substance: NILOTINIB
     Dosage: 300 MG, BID
     Route: 065
     Dates: start: 201708
  5. NILOTINIB [Suspect]
     Active Substance: NILOTINIB
     Dosage: UNK
     Route: 065
  6. FLUDARABINE [Suspect]
     Active Substance: FLUDARABINE PHOSPHATE
     Indication: BLAST CRISIS IN MYELOGENOUS LEUKAEMIA
     Dosage: UNK
     Route: 065
     Dates: start: 201712

REACTIONS (10)
  - White blood cell count increased [Unknown]
  - Rash [Unknown]
  - Cytopenia [Unknown]
  - Febrile neutropenia [Unknown]
  - Splenomegaly [Unknown]
  - Granulocyte count increased [Unknown]
  - Cytogenetic analysis abnormal [Unknown]
  - Graft versus host disease [Unknown]
  - Haemoglobin decreased [Unknown]
  - Platelet count decreased [Unknown]
